FAERS Safety Report 9014758 (Version 1)
Quarter: 2013Q1

REPORT INFORMATION
  Report Type: Spontaneous
  Country: US (occurrence: US)
  Receive Date: 20130115
  Receipt Date: 20130115
  Transmission Date: 20140127
  Serious: No
  Sender: FDA-Public Use
  Company Number: US-TEVA-380676USA

PATIENT
  Age: 45 Year
  Sex: Female
  Weight: 55.39 kg

DRUGS (4)
  1. PLAN B ONE-STEP [Suspect]
     Indication: POST COITAL CONTRACEPTION
     Dosage: 1.5 MILLIGRAM DAILY;
     Route: 048
     Dates: start: 20130102, end: 20130102
  2. WELLBUTRIN [Concomitant]
     Indication: DEPRESSION
     Dosage: QOD
     Route: 048
  3. CLARITIN [Concomitant]
     Indication: SEASONAL ALLERGY
  4. SINGULAIR [Concomitant]
     Indication: DYSPNOEA

REACTIONS (1)
  - Menstruation delayed [Not Recovered/Not Resolved]
